FAERS Safety Report 9455944 (Version 1)
Quarter: 2013Q3

REPORT INFORMATION
  Report Type: Spontaneous
  Country: CA (occurrence: CA)
  Receive Date: 20130813
  Receipt Date: 20130813
  Transmission Date: 20140515
  Serious: Yes (Other)
  Sender: FDA-Public Use
  Company Number: CA-TEVA-425906USA

PATIENT
  Age: 77 Year
  Sex: Male
  Weight: 65.38 kg

DRUGS (1)
  1. GALANTAMINE [Suspect]
     Dosage: 25 MILLIGRAM DAILY;
     Route: 048

REACTIONS (1)
  - Cognitive disorder [Recovered/Resolved]
